FAERS Safety Report 4986925-7 (Version None)
Quarter: 2006Q2

REPORT INFORMATION
  Report Type: 
  Country: None (occurrence: None)
  Receive Date: 20060501
  Receipt Date: 20060309
  Transmission Date: 20061013
  Serious: Yes (Hospitalization)
  Sender: FDA-Public Use
  Company Number: PHBS2006JP03875

PATIENT
  Age: 86 Year
  Sex: Female
  Weight: 60 kg

DRUGS (4)
  1. WARFARIN SODIUM [Concomitant]
     Indication: ATRIAL FIBRILLATION
     Dosage: 1.5 MG/DAY
     Route: 048
  2. LASIX [Concomitant]
     Indication: CARDIAC VALVE DISEASE
     Dosage: 20 MG/DAY
     Route: 048
  3. NU-LOTAN [Concomitant]
     Indication: HYPERTENSION
     Dosage: 25 MG/DAY
     Route: 048
  4. TEGRETOL [Suspect]
     Indication: FACIAL SPASM
     Dosage: 200 MG/DAY IN TWO DIVIDED DOSES
     Route: 048
     Dates: start: 20051019, end: 20051105

REACTIONS (14)
  - BLADDER CATHETERISATION [None]
  - BLOOD CREATININE INCREASED [None]
  - BLOOD UREA INCREASED [None]
  - CARDIAC FAILURE CONGESTIVE [None]
  - CENTRAL VENOUS PRESSURE INCREASED [None]
  - DYSPNOEA [None]
  - DYSURIA [None]
  - OEDEMA PERIPHERAL [None]
  - ORTHOPNOEA [None]
  - PLEURAL EFFUSION [None]
  - PULMONARY CONGESTION [None]
  - RENAL IMPAIRMENT [None]
  - URINARY RETENTION [None]
  - WEIGHT INCREASED [None]
